FAERS Safety Report 10391438 (Version 1)
Quarter: 2014Q3

REPORT INFORMATION
  Report Type: Spontaneous
  Country: ES (occurrence: ES)
  Receive Date: 20140818
  Receipt Date: 20140818
  Transmission Date: 20150326
  Serious: Yes (Other)
  Sender: FDA-Public Use
  Company Number: ES-MYLAN-2014M1001419

PATIENT

DRUGS (1)
  1. RISPERIDONE. [Suspect]
     Active Substance: RISPERIDONE
     Dosage: GRADUALLY INCREASED TO 8MG/DAY
     Route: 065

REACTIONS (3)
  - Asthenia [Unknown]
  - Weight decreased [Unknown]
  - Hepatocellular injury [Recovering/Resolving]
